FAERS Safety Report 9988314 (Version 1)
Quarter: 2014Q1

REPORT INFORMATION
  Report Type: Report from Study
  Country: US (occurrence: US)
  Receive Date: 20140310
  Receipt Date: 20140310
  Transmission Date: 20141002
  Serious: Yes (Other)
  Sender: FDA-Public Use
  Company Number: US-ROCHE-1355216

PATIENT
  Sex: Female

DRUGS (1)
  1. TRASTUZUMAB [Suspect]
     Indication: METASTASES TO MENINGES
     Route: 065

REACTIONS (9)
  - Muscular weakness [Unknown]
  - Platelet count decreased [Unknown]
  - Urinary incontinence [Unknown]
  - Confusional state [Unknown]
  - Hypoxia [Unknown]
  - Hypotension [Unknown]
  - Febrile neutropenia [Unknown]
  - Sepsis [Unknown]
  - Respiratory failure [Unknown]
